FAERS Safety Report 5526827-0 (Version None)
Quarter: 2007Q4

REPORT INFORMATION
  Report Type: 
  Country: None (occurrence: None)
  Receive Date: 20071127
  Receipt Date: 20071115
  Transmission Date: 20080405
  Serious: Yes (Other)
  Sender: FDA-Public Use
  Company Number: GB-PFIZER INC-2007076467

PATIENT
  Age: 19 Year
  Sex: Female

DRUGS (1)
  1. CHAMPIX [Suspect]
     Indication: SMOKING CESSATION THERAPY
     Route: 048
     Dates: start: 20070731, end: 20070911

REACTIONS (3)
  - CHEST DISCOMFORT [None]
  - HYPERVENTILATION [None]
  - PANIC ATTACK [None]
